FAERS Safety Report 5344205-4 (Version None)
Quarter: 2007Q2

REPORT INFORMATION
  Report Type: 
  Country: None (occurrence: None)
  Receive Date: 20070531
  Receipt Date: 20070531
  Transmission Date: 20071010
  Serious: Yes (Hospitalization)
  Sender: FDA-Public Use
  Company Number: None

PATIENT
  Sex: Male
  Weight: 116 kg

DRUGS (2)
  1. MELPHALAN [Suspect]
     Dosage: 434 MG
     Dates: end: 20070326
  2. CYCLOPHOSPHAMIDE [Suspect]
     Dosage: 8.7 G
     Dates: end: 20070221

REACTIONS (8)
  - BLOOD POTASSIUM DECREASED [None]
  - CLOSTRIDIAL INFECTION [None]
  - CLOSTRIDIUM DIFFICILE COLITIS [None]
  - DEHYDRATION [None]
  - DIARRHOEA [None]
  - HAEMOGLOBIN DECREASED [None]
  - NAUSEA [None]
  - VOMITING [None]
